FAERS Safety Report 8889288 (Version 2)
Quarter: 2012Q4

REPORT INFORMATION
  Report Type: 
  Country: PT (occurrence: PT)
  Receive Date: 20121106
  Receipt Date: 20121219
  Transmission Date: 20130627
  Serious: Yes (Life-Threatening)
  Sender: FDA-Public Use
  Company Number: PT-PFIZER INC-2012270758

PATIENT
  Age: 37 Year
  Sex: Female

DRUGS (6)
  1. TORISEL [Suspect]
     Indication: RENAL CELL CANCER
     Dosage: 25 mg, weekly
     Route: 042
     Dates: start: 201210, end: 201210
  2. DEXAMETHASONE [Concomitant]
     Indication: PROPHYLACTIC CHEMOTHERAPY
     Dosage: UNK
  3. ACECLOFENAC [Concomitant]
     Dosage: UNK, as needed
  4. PERINDOPRIL [Concomitant]
     Dosage: 4 mg, UNK
  5. ESOMEPRAZOLE [Concomitant]
     Dosage: UNK
  6. FLORADIX FORMULA [Concomitant]
     Dosage: UNK

REACTIONS (5)
  - Respiratory failure [Recovered/Resolved]
  - Reaction to drug excipients [Recovered/Resolved]
  - Product quality issue [Recovered/Resolved]
  - Hyperhidrosis [Recovered/Resolved]
  - Malaise [Recovered/Resolved]
